FAERS Safety Report 4838372-6 (Version None)
Quarter: 2005Q4

REPORT INFORMATION
  Report Type: 
  Country: None (occurrence: None)
  Receive Date: 20051123
  Receipt Date: 20051111
  Transmission Date: 20060501
  Serious: Yes (Other)
  Sender: FDA-Public Use
  Company Number: 2005154868

PATIENT
  Sex: Female

DRUGS (9)
  1. LIPITOR [Suspect]
     Indication: BLOOD CHOLESTEROL
     Dosage: 80 MG (80 MG, 1 IN 1 D)
  2. ZETIA [Suspect]
     Indication: ILL-DEFINED DISORDER
  3. LANTUS [Concomitant]
  4. HUMALOG [Concomitant]
  5. LOTREL [Concomitant]
  6. METOPROLOL TARTRATE [Concomitant]
  7. PLAVIX [Concomitant]
  8. DANAZOL [Concomitant]
  9. IRON (IRON) [Concomitant]

REACTIONS (5)
  - ARTHRITIS [None]
  - CORONARY ARTERY DISEASE [None]
  - EYELID OEDEMA [None]
  - RENAL FAILURE ACUTE [None]
  - RHABDOMYOLYSIS [None]
